FAERS Safety Report 15896066 (Version 2)
Quarter: 2019Q2

REPORT INFORMATION
  Report Type: Spontaneous
  Country: US (occurrence: US)
  Receive Date: 20190131
  Receipt Date: 20190416
  Transmission Date: 20190711
  Serious: Yes (Other)
  Sender: FDA-Public Use
  Company Number: US-ASTRAZENECA-2018SF13713

PATIENT

DRUGS (33)
  1. IBUPROFEN. [Concomitant]
     Active Substance: IBUPROFEN
  2. GABAPENTIN. [Concomitant]
     Active Substance: GABAPENTIN
  3. NAPROXEN. [Concomitant]
     Active Substance: NAPROXEN
  4. VERAPAMIL HYDROCHLORIDE. [Concomitant]
     Active Substance: VERAPAMIL HYDROCHLORIDE
  5. OMEPRAZOLE. [Suspect]
     Active Substance: OMEPRAZOLE
     Dosage: GENERIC
     Route: 065
  6. VERAPAMIL [Concomitant]
     Active Substance: VERAPAMIL HYDROCHLORIDE
  7. PRAVASTATIN SODIUM. [Concomitant]
     Active Substance: PRAVASTATIN SODIUM
  8. LYRICA [Concomitant]
     Active Substance: PREGABALIN
  9. PROMETHAZINE [Concomitant]
     Active Substance: PROMETHAZINE\PROMETHAZINE HYDROCHLORIDE
  10. LORATADINE. [Concomitant]
     Active Substance: LORATADINE
  11. FERROUS SULFATE. [Concomitant]
     Active Substance: FERROUS SULFATE
  12. ATENOLOL. [Concomitant]
     Active Substance: ATENOLOL
  13. NEXIUM [Suspect]
     Active Substance: ESOMEPRAZOLE MAGNESIUM
     Route: 048
  14. AZITHROMYCIN ANHYDROUS. [Concomitant]
     Active Substance: AZITHROMYCIN ANHYDROUS
  15. EFFEXOR [Concomitant]
     Active Substance: VENLAFAXINE HYDROCHLORIDE
  16. TRAZODONE [Concomitant]
     Active Substance: TRAZODONE HYDROCHLORIDE
  17. ANORO ELLIPTA [Concomitant]
     Active Substance: UMECLIDINIUM BROMIDE\VILANTEROL TRIFENATATE
  18. HYDROCODONE-ACETAMINOPHEN [Concomitant]
     Active Substance: ACETAMINOPHEN\HYDROCODONE
  19. NEXIUM [Suspect]
     Active Substance: ESOMEPRAZOLE MAGNESIUM
     Route: 048
     Dates: start: 2013, end: 2016
  20. MONTELUKAST [Concomitant]
     Active Substance: MONTELUKAST SODIUM
  21. VERAPAMIL [Concomitant]
     Active Substance: VERAPAMIL HYDROCHLORIDE
  22. BENAZEPRIL HCL [Concomitant]
     Active Substance: BENAZEPRIL HYDROCHLORIDE
  23. NEXIUM [Suspect]
     Active Substance: ESOMEPRAZOLE MAGNESIUM
     Route: 048
     Dates: start: 20130201
  24. PREDNISONE. [Concomitant]
     Active Substance: PREDNISONE
  25. LORATADINE. [Concomitant]
     Active Substance: LORATADINE
  26. METFORMIN [Concomitant]
     Active Substance: METFORMIN HYDROCHLORIDE
  27. GLIPIZIDE. [Concomitant]
     Active Substance: GLIPIZIDE
  28. CIPROFLOXACIN. [Concomitant]
     Active Substance: CIPROFLOXACIN
  29. HYDROCHLOROTHIAZIDE. [Concomitant]
     Active Substance: HYDROCHLOROTHIAZIDE
  30. XOPENEX [Concomitant]
     Active Substance: LEVALBUTEROL HYDROCHLORIDE
  31. BENAZEPRIL [Concomitant]
     Active Substance: BENAZEPRIL HYDROCHLORIDE
  32. COLACE [Concomitant]
     Active Substance: DOCUSATE SODIUM
  33. DOXYCYCLINE. [Concomitant]
     Active Substance: DOXYCYCLINE

REACTIONS (2)
  - Renal disorder [Unknown]
  - Chronic kidney disease [Unknown]
